FAERS Safety Report 25675663 (Version 2)
Quarter: 2025Q3

REPORT INFORMATION
  Report Type: Spontaneous
  Country: GB (occurrence: GB)
  Receive Date: 20250813
  Receipt Date: 20250821
  Transmission Date: 20251021
  Serious: Yes (Other)
  Sender: MYLAN
  Company Number: None

PATIENT

DRUGS (52)
  1. FAMOTIDINE [Suspect]
     Active Substance: FAMOTIDINE
     Indication: Gastrooesophageal reflux disease
     Dosage: 40 MILLIGRAM, AM (TWICE DAILY.40MG AM, 20MG PM)
  2. FAMOTIDINE [Suspect]
     Active Substance: FAMOTIDINE
     Dosage: 40 MILLIGRAM, AM (TWICE DAILY.40MG AM, 20MG PM)
  3. FAMOTIDINE [Suspect]
     Active Substance: FAMOTIDINE
     Dosage: 40 MILLIGRAM, AM (TWICE DAILY.40MG AM, 20MG PM)
     Route: 065
  4. FAMOTIDINE [Suspect]
     Active Substance: FAMOTIDINE
     Dosage: 40 MILLIGRAM, AM (TWICE DAILY.40MG AM, 20MG PM)
     Route: 065
  5. FAMOTIDINE [Suspect]
     Active Substance: FAMOTIDINE
     Dosage: 20 MILLIGRAM, PM (TWICE DAILY.40MG AM, 20MG PM)
  6. FAMOTIDINE [Suspect]
     Active Substance: FAMOTIDINE
     Dosage: 20 MILLIGRAM, PM (TWICE DAILY.40MG AM, 20MG PM)
  7. FAMOTIDINE [Suspect]
     Active Substance: FAMOTIDINE
     Dosage: 20 MILLIGRAM, PM (TWICE DAILY.40MG AM, 20MG PM)
     Route: 065
  8. FAMOTIDINE [Suspect]
     Active Substance: FAMOTIDINE
     Dosage: 20 MILLIGRAM, PM (TWICE DAILY.40MG AM, 20MG PM)
     Route: 065
  9. LANSOPRAZOLE [Concomitant]
     Active Substance: LANSOPRAZOLE
  10. LANSOPRAZOLE [Concomitant]
     Active Substance: LANSOPRAZOLE
     Route: 048
  11. LANSOPRAZOLE [Concomitant]
     Active Substance: LANSOPRAZOLE
     Route: 048
  12. LANSOPRAZOLE [Concomitant]
     Active Substance: LANSOPRAZOLE
  13. SODIUM BICARBONATE [Concomitant]
     Active Substance: SODIUM BICARBONATE
     Dosage: 500 MILLIGRAM, BID (TWICE DAILY)
  14. SODIUM BICARBONATE [Concomitant]
     Active Substance: SODIUM BICARBONATE
     Dosage: 500 MILLIGRAM, BID (TWICE DAILY)
     Route: 065
  15. SODIUM BICARBONATE [Concomitant]
     Active Substance: SODIUM BICARBONATE
     Dosage: 500 MILLIGRAM, BID (TWICE DAILY)
     Route: 065
  16. SODIUM BICARBONATE [Concomitant]
     Active Substance: SODIUM BICARBONATE
     Dosage: 500 MILLIGRAM, BID (TWICE DAILY)
  17. RIFAMPIN [Concomitant]
     Active Substance: RIFAMPIN
     Dosage: 900 MILLIGRAM, QD (ONCE A DAY)
  18. RIFAMPIN [Concomitant]
     Active Substance: RIFAMPIN
     Dosage: 900 MILLIGRAM, QD (ONCE A DAY)
     Route: 065
  19. RIFAMPIN [Concomitant]
     Active Substance: RIFAMPIN
     Dosage: 900 MILLIGRAM, QD (ONCE A DAY)
     Route: 065
  20. RIFAMPIN [Concomitant]
     Active Substance: RIFAMPIN
     Dosage: 900 MILLIGRAM, QD (ONCE A DAY)
  21. CALCIUM CARBONATE [Concomitant]
     Active Substance: CALCIUM CARBONATE
     Dosage: 1 DOSAGE FORM, BID (1 TABLET TWICE DAILY)
  22. CALCIUM CARBONATE [Concomitant]
     Active Substance: CALCIUM CARBONATE
     Dosage: 1 DOSAGE FORM, BID (1 TABLET TWICE DAILY)
     Route: 065
  23. CALCIUM CARBONATE [Concomitant]
     Active Substance: CALCIUM CARBONATE
     Dosage: 1 DOSAGE FORM, BID (1 TABLET TWICE DAILY)
     Route: 065
  24. CALCIUM CARBONATE [Concomitant]
     Active Substance: CALCIUM CARBONATE
     Dosage: 1 DOSAGE FORM, BID (1 TABLET TWICE DAILY)
  25. VALSARTAN [Concomitant]
     Active Substance: VALSARTAN
     Dosage: 26 MILLIGRAM, BID (1 TABLET TWICE A DAY)
  26. VALSARTAN [Concomitant]
     Active Substance: VALSARTAN
     Dosage: 26 MILLIGRAM, BID (1 TABLET TWICE A DAY)
     Route: 065
  27. VALSARTAN [Concomitant]
     Active Substance: VALSARTAN
     Dosage: 26 MILLIGRAM, BID (1 TABLET TWICE A DAY)
     Route: 065
  28. VALSARTAN [Concomitant]
     Active Substance: VALSARTAN
     Dosage: 26 MILLIGRAM, BID (1 TABLET TWICE A DAY)
  29. LEVOFLOXACIN [Concomitant]
     Active Substance: LEVOFLOXACIN
     Dosage: 500 MILLIGRAM, QD (ONCE A DAY)
  30. LEVOFLOXACIN [Concomitant]
     Active Substance: LEVOFLOXACIN
     Dosage: 500 MILLIGRAM, QD (ONCE A DAY)
     Route: 065
  31. LEVOFLOXACIN [Concomitant]
     Active Substance: LEVOFLOXACIN
     Dosage: 500 MILLIGRAM, QD (ONCE A DAY)
     Route: 065
  32. LEVOFLOXACIN [Concomitant]
     Active Substance: LEVOFLOXACIN
     Dosage: 500 MILLIGRAM, QD (ONCE A DAY)
  33. ALFACALCIDOL [Concomitant]
     Active Substance: ALFACALCIDOL
  34. ALFACALCIDOL [Concomitant]
     Active Substance: ALFACALCIDOL
     Route: 065
  35. ALFACALCIDOL [Concomitant]
     Active Substance: ALFACALCIDOL
     Route: 065
  36. ALFACALCIDOL [Concomitant]
     Active Substance: ALFACALCIDOL
  37. BISOPROLOL [Concomitant]
     Active Substance: BISOPROLOL
     Dosage: 2.5 MILLIGRAM, QD (ONCE A DAY)
  38. BISOPROLOL [Concomitant]
     Active Substance: BISOPROLOL
     Dosage: 2.5 MILLIGRAM, QD (ONCE A DAY)
     Route: 065
  39. BISOPROLOL [Concomitant]
     Active Substance: BISOPROLOL
     Dosage: 2.5 MILLIGRAM, QD (ONCE A DAY)
     Route: 065
  40. BISOPROLOL [Concomitant]
     Active Substance: BISOPROLOL
     Dosage: 2.5 MILLIGRAM, QD (ONCE A DAY)
  41. ARANESP [Concomitant]
     Active Substance: DARBEPOETIN ALFA
     Dosage: 40 MICROGRAM PER 100 GRAM, MONTHLY (ONCE MONTHLY)
  42. ARANESP [Concomitant]
     Active Substance: DARBEPOETIN ALFA
     Dosage: 40 MICROGRAM PER 100 GRAM, MONTHLY (ONCE MONTHLY)
     Route: 058
  43. ARANESP [Concomitant]
     Active Substance: DARBEPOETIN ALFA
     Dosage: 40 MICROGRAM PER 100 GRAM, MONTHLY (ONCE MONTHLY)
     Route: 058
  44. ARANESP [Concomitant]
     Active Substance: DARBEPOETIN ALFA
     Dosage: 40 MICROGRAM PER 100 GRAM, MONTHLY (ONCE MONTHLY)
  45. SACUBITRIL [Concomitant]
     Active Substance: SACUBITRIL
  46. SACUBITRIL [Concomitant]
     Active Substance: SACUBITRIL
     Route: 065
  47. SACUBITRIL [Concomitant]
     Active Substance: SACUBITRIL
     Route: 065
  48. SACUBITRIL [Concomitant]
     Active Substance: SACUBITRIL
  49. SUCRALFATE [Concomitant]
     Active Substance: SUCRALFATE
  50. SUCRALFATE [Concomitant]
     Active Substance: SUCRALFATE
     Route: 048
  51. SUCRALFATE [Concomitant]
     Active Substance: SUCRALFATE
     Route: 048
  52. SUCRALFATE [Concomitant]
     Active Substance: SUCRALFATE

REACTIONS (2)
  - Cardiac failure [Unknown]
  - Tachycardia [Unknown]
